FAERS Safety Report 11999958 (Version 1)
Quarter: 2016Q1

REPORT INFORMATION
  Report Type: Report from Study
  Country: BR (occurrence: BR)
  Receive Date: 20160204
  Receipt Date: 20160204
  Transmission Date: 20160526
  Serious: Yes (Hospitalization, Other)
  Sender: FDA-Public Use
  Company Number: PHHY2016BR013885

PATIENT
  Age: 68 Year
  Sex: Female
  Weight: 49 kg

DRUGS (4)
  1. DIOSMIN W/HESPERIDIN [Concomitant]
     Indication: PERIPHERAL VASCULAR DISORDER
     Route: 065
  2. AFINITOR [Suspect]
     Active Substance: EVEROLIMUS
     Indication: RENAL CANCER
     Dosage: 1 DF (1X 10 MG TABLET), QD
     Route: 048
  3. AFINITOR [Suspect]
     Active Substance: EVEROLIMUS
     Dosage: 2 DF (2X 5 MG TABLET), QD
     Route: 048
  4. MORPHINE [Concomitant]
     Active Substance: MORPHINE
     Indication: PRODUCT USED FOR UNKNOWN INDICATION
     Route: 065

REACTIONS (8)
  - Hypophagia [Recovering/Resolving]
  - Metastasis [Unknown]
  - Nervousness [Unknown]
  - Asthenia [Recovering/Resolving]
  - Weight decreased [Unknown]
  - Constipation [Recovering/Resolving]
  - Malaise [Recovering/Resolving]
  - Vomiting [Unknown]

NARRATIVE: CASE EVENT DATE: 20151214
